FAERS Safety Report 6965717-3 (Version None)
Quarter: 2010Q3

REPORT INFORMATION
  Report Type: 
  Country: None (occurrence: None)
  Receive Date: 20100903
  Receipt Date: 20100903
  Transmission Date: 20110219
  Serious: Yes (Disabling)
  Sender: FDA-Public Use
  Company Number: IT-MPIJNJ-2010-01047

PATIENT

DRUGS (2)
  1. VELCADE [Suspect]
     Indication: MULTIPLE MYELOMA
     Dosage: 1 MG, UNK
     Route: 042
     Dates: start: 20090518, end: 20090615
  2. DEXAMETHASONE [Concomitant]

REACTIONS (1)
  - ACUTE POLYNEUROPATHY [None]
